FAERS Safety Report 6043126-1 (Version None)
Quarter: 2009Q1

REPORT INFORMATION
  Report Type: 
  Country: None (occurrence: None)
  Receive Date: 20090119
  Receipt Date: 20090106
  Transmission Date: 20090719
  Serious: Yes (Hospitalization)
  Sender: FDA-Public Use
  Company Number: US-ROCHE-600826

PATIENT
  Sex: Female
  Weight: 41.7 kg

DRUGS (6)
  1. BONIVA [Suspect]
     Indication: OSTEOPOROSIS
     Route: 048
  2. CALCIUM SUPPLEMENT [Concomitant]
  3. VITAMINE D [Concomitant]
  4. THYROID TAB [Concomitant]
     Dosage: DRUG REPORTED: ARMAN THYROID; FREQUENCY: QD
  5. PROZAC [Concomitant]
  6. LUNESTA [Concomitant]
     Dosage: FREQUENCY: PRN

REACTIONS (2)
  - FALL [None]
  - HIP FRACTURE [None]
